FAERS Safety Report 6062999-X (Version None)
Quarter: 2009Q1

REPORT INFORMATION
  Report Type: 
  Country: None (occurrence: None)
  Receive Date: 20090203
  Receipt Date: 20090130
  Transmission Date: 20090719
  Serious: Yes (Life-Threatening, Other)
  Sender: FDA-Public Use
  Company Number: B0557118A

PATIENT

DRUGS (3)
  1. TELZIR [Suspect]
     Indication: HIV INFECTION
     Route: 065
  2. RITONAVIR [Suspect]
     Indication: HIV INFECTION
     Route: 065
  3. TRUVADA [Suspect]
     Indication: HIV INFECTION
     Route: 065

REACTIONS (1)
  - RHABDOMYOLYSIS [None]
